FAERS Safety Report 4897672-4 (Version None)
Quarter: 2006Q1

REPORT INFORMATION
  Report Type: 
  Country: None (occurrence: None)
  Receive Date: 20060130
  Receipt Date: 20060117
  Transmission Date: 20060701
  Serious: Yes (Hospitalization, Other)
  Sender: FDA-Public Use
  Company Number: 2005160476

PATIENT
  Age: 60 Year
  Sex: Male
  Weight: 70.7611 kg

DRUGS (7)
  1. VIAGRA [Suspect]
     Indication: ERECTILE DYSFUNCTION
     Dosage: 50 MG (50 MG, AS NECESSARY), ORAL
     Route: 048
     Dates: start: 20030101, end: 20050501
  2. ANTIDEPRESSANTS (ANTIDEPRESSANTS) [Concomitant]
  3. ZOCOR [Concomitant]
  4. FLUOXETINE [Concomitant]
  5. LISINOPRIL [Concomitant]
  6. PRILOSEC [Concomitant]
  7. PROZAC [Concomitant]

REACTIONS (6)
  - ARTERIAL OCCLUSIVE DISEASE [None]
  - BLOOD PRESSURE INCREASED [None]
  - DYSPHAGIA [None]
  - FEELING ABNORMAL [None]
  - HERNIA HIATUS REPAIR [None]
  - INSOMNIA [None]
